FAERS Safety Report 5254048-8 (Version None)
Quarter: 2007Q1

REPORT INFORMATION
  Report Type: 
  Country: None (occurrence: None)
  Receive Date: 20070302
  Receipt Date: 20070220
  Transmission Date: 20070707
  Serious: Yes (Other)
  Sender: FDA-Public Use
  Company Number: FR-AMGEN-UK211599

PATIENT
  Sex: Male
  Weight: 83 kg

DRUGS (3)
  1. ARANESP [Suspect]
     Indication: MYELODYSPLASTIC SYNDROME
     Route: 058
     Dates: start: 20070213, end: 20070213
  2. DIAMICRON [Concomitant]
     Route: 065
  3. GINGKO BILOBA [Concomitant]

REACTIONS (1)
  - HYPERTENSION [None]
